FAERS Safety Report 16656856 (Version 1)
Quarter: 2019Q3

REPORT INFORMATION
  Report Type: Spontaneous
  Country: US (occurrence: US)
  Receive Date: 20190618
  Receipt Date: 20190618
  Transmission Date: 20191004
  Serious: No
  Sender: FDA-Public Use
  Company Number: None

PATIENT
  Age: 70 Year
  Sex: Male

DRUGS (1)
  1. IMATINIB 400MG TAB (X30) [Suspect]
     Active Substance: IMATINIB
     Route: 048
     Dates: start: 201904

REACTIONS (6)
  - Arthritis [None]
  - Pain [None]
  - Therapy cessation [None]
  - Eye irritation [None]
  - Dry eye [None]
  - Product dispensing error [None]

NARRATIVE: CASE EVENT DATE: 20190618
